FAERS Safety Report 9822264 (Version 1)
Quarter: 2014Q1

REPORT INFORMATION
  Report Type: Spontaneous
  Country: US (occurrence: US)
  Receive Date: 20140116
  Receipt Date: 20140116
  Transmission Date: 20141002
  Serious: Yes (Death)
  Sender: FDA-Public Use
  Company Number: US-ASTELLAS-2014US000323

PATIENT
  Age: 68 Year
  Sex: Male

DRUGS (1)
  1. TARCEVA [Suspect]
     Indication: MALIGNANT MELANOMA
     Dosage: 150 MG, UID/QD
     Route: 048
     Dates: start: 20131114

REACTIONS (2)
  - Off label use [Unknown]
  - Death [Fatal]
